FAERS Safety Report 4775667-9 (Version None)
Quarter: 2005Q3

REPORT INFORMATION
  Report Type: 
  Country: None (occurrence: None)
  Receive Date: 20050920
  Receipt Date: 20050920
  Transmission Date: 20060218
  Serious: Yes (Hospitalization)
  Sender: FDA-Public Use
  Company Number: None

PATIENT
  Age: 40 Year
  Sex: Male
  Weight: 107.0489 kg

DRUGS (15)
  1. CLOZAPINE [Suspect]
     Indication: SCHIZOPHRENIA
     Dosage: 400MG Q AM, 500MG Q PM BID PO
     Route: 048
  2. ATIVAN [Concomitant]
  3. .. [Concomitant]
  4. DEPAKOTE [Concomitant]
  5. COGENTIN [Concomitant]
  6. MULTI-VITAMIN [Concomitant]
  7. CLONIDINE [Concomitant]
  8. LIPITOR [Concomitant]
  9. ATROPINE 1% EYEDROPS [Concomitant]
  10. WELLBUTRIN [Concomitant]
  11. HALDOL [Concomitant]
  12. MIRALAX [Concomitant]
  13. SENNA [Concomitant]
  14. ZYPREXA [Concomitant]
  15. BENADRYL [Concomitant]

REACTIONS (1)
  - PERICARDIAL HAEMORRHAGE [None]
